FAERS Safety Report 9175262 (Version 1)
Quarter: 2013Q1

REPORT INFORMATION
  Report Type: Spontaneous
  Country: US (occurrence: US)
  Receive Date: 20130320
  Receipt Date: 20130320
  Transmission Date: 20140127
  Serious: Yes (Hospitalization)
  Sender: FDA-Public Use
  Company Number: US-NAPPMUNDI-USA-2013-0099832

PATIENT
  Age: 50 Year
  Sex: Female

DRUGS (6)
  1. BUTRANS [Suspect]
     Indication: NECK PAIN
     Dosage: UNK
     Route: 062
  2. OXYCODONE HYDROCHLORIDE (SIMILAR TO NDA 22-272) [Suspect]
     Indication: PRODUCT USED FOR UNKNOWN INDICATION
     Route: 048
  3. LORTAB                             /00607101/ [Suspect]
     Indication: PRODUCT USED FOR UNKNOWN INDICATION
     Route: 048
  4. DARVOCET                           /00220901/ [Suspect]
     Indication: PRODUCT USED FOR UNKNOWN INDICATION
     Route: 048
  5. VALIUM                             /00017001/ [Suspect]
     Indication: PRODUCT USED FOR UNKNOWN INDICATION
     Route: 048
  6. MUSCLE RELAXANTS [Suspect]
     Indication: PRODUCT USED FOR UNKNOWN INDICATION

REACTIONS (10)
  - Muscle spasms [Unknown]
  - Blood pressure increased [Unknown]
  - Convulsion [Unknown]
  - Hyperhidrosis [Unknown]
  - Constipation [Unknown]
  - Application site burn [Recovered/Resolved]
  - Application site scab [Recovered/Resolved]
  - Application site vesicles [Recovered/Resolved]
  - Product adhesion issue [Unknown]
  - Malaise [Unknown]
